FAERS Safety Report 6805633-0 (Version None)
Quarter: 2010Q2

REPORT INFORMATION
  Report Type: 
  Country: None (occurrence: None)
  Receive Date: 20100628
  Receipt Date: 20080201
  Transmission Date: 20101027
  Serious: Yes (Hospitalization, Other)
  Sender: FDA-Public Use
  Company Number: US-PFIZER INC-2007103196

PATIENT
  Sex: Female
  Weight: 75 kg

DRUGS (4)
  1. XALATAN [Suspect]
     Indication: GLAUCOMA
     Dosage: DAILY: EVERY DAY
     Dates: start: 20060101
  2. ADVAIR DISKUS 100/50 [Concomitant]
     Indication: CHRONIC OBSTRUCTIVE PULMONARY DISEASE
     Route: 048
  3. DYAZIDE [Concomitant]
     Indication: BLOOD PRESSURE
     Route: 048
  4. CYMBALTA [Concomitant]
     Route: 048

REACTIONS (2)
  - DYSPHONIA [None]
  - PNEUMONIA [None]
